FAERS Safety Report 12537860 (Version 2)
Quarter: 2018Q3

REPORT INFORMATION
  Report Type: Spontaneous
  Country: US (occurrence: US)
  Receive Date: 20160707
  Receipt Date: 20180920
  Transmission Date: 20181010
  Serious: Yes (Hospitalization, Other)
  Sender: FDA-Public Use
  Company Number: US-DSJP-DSU-2015-120132

PATIENT

DRUGS (1)
  1. BENICAR HCT [Suspect]
     Active Substance: HYDROCHLOROTHIAZIDE\OLMESARTAN MEDOXOMIL
     Indication: HYPERTENSION
     Dosage: 40?12.5 MG, QD
     Route: 048
     Dates: start: 20140101

REACTIONS (8)
  - Helicobacter gastritis [Unknown]
  - Depression [Unknown]
  - Constipation [Unknown]
  - Impaired gastric emptying [Recovering/Resolving]
  - Polyp [Recovered/Resolved]
  - Gastrointestinal tract adenoma [Recovered/Resolved]
  - Sprue-like enteropathy [Not Recovered/Not Resolved]
  - Renal failure [Unknown]

NARRATIVE: CASE EVENT DATE: 20141001
